FAERS Safety Report 25789872 (Version 1)
Quarter: 2025Q3

REPORT INFORMATION
  Report Type: Other
  Country: US (occurrence: US)
  Receive Date: 20250911
  Receipt Date: 20250911
  Transmission Date: 20251021
  Serious: No
  Sender: TIME CAPS
  Company Number: US-Time-Cap Labs, Inc.-2184271

PATIENT
  Sex: Female

DRUGS (2)
  1. NATURAL LAXATIVE [Suspect]
     Active Substance: SENNOSIDES
     Indication: Constipation
  2. XELODA [Concomitant]
     Active Substance: CAPECITABINE

REACTIONS (1)
  - Drug ineffective [Unknown]

NARRATIVE: CASE EVENT DATE: 20250825
